FAERS Safety Report 5444891-4 (Version None)
Quarter: 2007Q3

REPORT INFORMATION
  Report Type: 
  Country: None (occurrence: None)
  Receive Date: 20070906
  Receipt Date: 20070904
  Transmission Date: 20080115
  Serious: Yes (Death, Hospitalization, Disabling)
  Sender: FDA-Public Use
  Company Number: A0654287A

PATIENT
  Age: 88 Year
  Sex: Male

DRUGS (10)
  1. AVODART [Suspect]
     Indication: BENIGN PROSTATIC HYPERPLASIA
     Dosage: .5MG PER DAY
     Route: 048
     Dates: start: 20070411
  2. ZOCOR [Concomitant]
     Dosage: 20U PER DAY
     Route: 048
  3. NAMENDA [Concomitant]
     Dosage: 10U TWICE PER DAY
     Route: 048
  4. ZETIA [Concomitant]
     Dosage: 10U PER DAY
     Route: 048
  5. GLUCOTROL [Concomitant]
     Dosage: 5U PER DAY
     Route: 048
  6. PLAVIX [Concomitant]
     Dosage: 75MG PER DAY
     Route: 048
  7. ALDACTONE [Concomitant]
     Dosage: 25MG PER DAY
     Route: 048
  8. ECOTRIN [Concomitant]
     Dosage: 325MG PER DAY
     Route: 048
  9. LEXAPRO [Concomitant]
     Dosage: 10MG PER DAY
     Route: 048
  10. LEVOTHYROXINE SODIUM [Concomitant]
     Dosage: 100MCG PER DAY
     Route: 048

REACTIONS (2)
  - CEREBROVASCULAR ACCIDENT [None]
  - DYSPHAGIA [None]
